FAERS Safety Report 4457900-6 (Version None)
Quarter: 2004Q4

REPORT INFORMATION
  Report Type: 
  Country: None (occurrence: None)
  Receive Date: 20040917
  Receipt Date: 20040607
  Transmission Date: 20050328
  Serious: Yes (Other)
  Sender: FDA-Public Use
  Company Number: US-JNJFOC-20040602626

PATIENT
  Sex: Female

DRUGS (1)
  1. TOPAMAX [Suspect]
     Indication: BIPOLAR DISORDER
     Dosage: 100 MG, 2 IN 1 DAY, ORAL; 100 MG, 1 IN 1 DAY, ORAL
     Route: 048

REACTIONS (3)
  - CONVULSION [None]
  - MALAISE [None]
  - UNEXPECTED THERAPEUTIC DRUG EFFECT [None]
